FAERS Safety Report 18452933 (Version 3)
Quarter: 2020Q4

REPORT INFORMATION
  Report Type: Spontaneous
  Country: JP (occurrence: JP)
  Receive Date: 20201102
  Receipt Date: 20201207
  Transmission Date: 20210114
  Serious: Yes (Hospitalization, Other)
  Sender: FDA-Public Use
  Company Number: JP-PFIZER INC-2020418185

PATIENT
  Age: 57 Year
  Sex: Male
  Weight: 61.5 kg

DRUGS (1)
  1. UNASYN-S 3G [Suspect]
     Active Substance: AMPICILLIN SODIUM\SULBACTAM SODIUM
     Indication: ACTINOMYCOSIS
     Dosage: 3 G, 4X/DAY
     Route: 042
     Dates: start: 20201006, end: 20201025

REACTIONS (14)
  - C-reactive protein increased [Unknown]
  - Eosinophil count increased [Unknown]
  - Lymphocyte percentage decreased [Unknown]
  - Abdominal pain [Recovered/Resolved]
  - Neutrophil percentage increased [Unknown]
  - Monocyte percentage decreased [Unknown]
  - Haematochezia [Recovered/Resolved]
  - Haemoglobin decreased [Unknown]
  - White blood cell count increased [Unknown]
  - Enterocolitis haemorrhagic [Recovered/Resolved]
  - Diarrhoea [Recovered/Resolved]
  - Haematocrit decreased [Unknown]
  - Off label use [Unknown]
  - Red blood cell count increased [Unknown]

NARRATIVE: CASE EVENT DATE: 20201006
